FAERS Safety Report 9258025 (Version 1)
Quarter: 2013Q1

REPORT INFORMATION
  Report Type: Spontaneous
  Country: US (occurrence: None)
  Receive Date: 20121212
  Receipt Date: 20121212
  Transmission Date: 20140127
  Serious: No
  Sender: FDA-Public Use
  Company Number: 1208USA007664

PATIENT
  Age: 42 Year
  Sex: Female

DRUGS (3)
  1. PEGINTRON (PEGINTRON) [Suspect]
     Indication: HEPATITIS C
     Dosage: UNK
     Dates: start: 20120525
  2. REBETOL [Suspect]
     Dosage: UNK
     Dates: start: 20120525
  3. VICTRELIS [Suspect]
     Indication: HEPATITIS C
     Dosage: 0.5 MG, UNK , UNK
     Dates: start: 20120623

REACTIONS (8)
  - Platelet count decreased [None]
  - Urinary tract infection [None]
  - Eye discharge [None]
  - Platelet count decreased [None]
  - Therapy cessation [None]
  - Fatigue [None]
  - Red blood cell count decreased [None]
  - White blood cell count decreased [None]
